FAERS Safety Report 6608587-5 (Version None)
Quarter: 2010Q1

REPORT INFORMATION
  Report Type: 
  Country: None (occurrence: None)
  Receive Date: 20100301
  Receipt Date: 20100219
  Transmission Date: 20100710
  Serious: Yes (Death, Other)
  Sender: FDA-Public Use
  Company Number: GXKR2010US02093

PATIENT
  Age: 46 Year
  Sex: Male

DRUGS (3)
  1. PREDNISONE TAB [Suspect]
     Indication: WEGENER'S GRANULOMATOSIS
     Route: 065
  2. METHOTREXATE [Suspect]
     Indication: WEGENER'S GRANULOMATOSIS
     Route: 065
  3. VORICONAZOLE [Suspect]
     Indication: PROPHYLAXIS
     Dosage: 200 MG, BID
     Route: 065

REACTIONS (7)
  - ACTINIC KERATOSIS [None]
  - METASTATIC NEOPLASM [None]
  - MICROGRAPHIC SKIN SURGERY [None]
  - PAROTIDECTOMY [None]
  - PHOTOSENSITIVITY REACTION [None]
  - SQUAMOUS CELL CARCINOMA [None]
  - TELANGIECTASIA [None]
